FAERS Safety Report 14274909 (Version 3)
Quarter: 2018Q1

REPORT INFORMATION
  Report Type: Spontaneous
  Country: US (occurrence: US)
  Receive Date: 20171212
  Receipt Date: 20180125
  Transmission Date: 20180508
  Serious: Yes (Hospitalization, Other)
  Sender: FDA-Public Use
  Company Number: US-GLAXOSMITHKLINE-US2017GSK189742

PATIENT
  Age: 18 Year
  Sex: Female
  Weight: 44 kg

DRUGS (3)
  1. FLOLAN [Suspect]
     Active Substance: EPOPROSTENOL SODIUM
     Indication: PULMONARY HYPERTENSION
     Dosage: 66 NG/KG/MIN, CO
     Dates: start: 20080616
  2. FLOLAN [Suspect]
     Active Substance: EPOPROSTENOL SODIUM
     Indication: PULMONARY HYPERTENSION
     Dosage: UNK
     Dates: start: 20170717
  3. FLOLAN [Suspect]
     Active Substance: EPOPROSTENOL SODIUM
     Dosage: UNK

REACTIONS (4)
  - Therapeutic procedure [Unknown]
  - Device occlusion [Unknown]
  - Central venous catheterisation [Unknown]
  - Influenza [Unknown]

NARRATIVE: CASE EVENT DATE: 20180101
